FAERS Safety Report 9804212 (Version 1)
Quarter: 2014Q1

REPORT INFORMATION
  Report Type: Spontaneous
  Country: US (occurrence: US)
  Receive Date: 20140108
  Receipt Date: 20140108
  Transmission Date: 20141002
  Serious: No
  Sender: FDA-Public Use
  Company Number: US-009507513-1401USA002539

PATIENT
  Age: 36 Year
  Sex: Female

DRUGS (7)
  1. CLARITIN-D-24 [Suspect]
     Indication: HYPERSENSITIVITY
     Dosage: UNK, UNKNOWN
     Route: 048
  2. CLARITIN-D-24 [Suspect]
     Indication: RHINORRHOEA
  3. CLARITIN-D-24 [Suspect]
     Indication: EYE PRURITUS
  4. CLARITIN-D-24 [Suspect]
     Indication: LACRIMATION INCREASED
  5. CLARITIN-D-24 [Suspect]
     Indication: SNEEZING
  6. CLARITIN-D-24 [Suspect]
     Indication: SINUS HEADACHE
  7. CLARITIN-D-24 [Suspect]
     Indication: THROAT IRRITATION

REACTIONS (2)
  - Insomnia [Unknown]
  - Drug effect decreased [Unknown]
